FAERS Safety Report 13271310 (Version 1)
Quarter: 2017Q1

REPORT INFORMATION
  Report Type: Spontaneous
  Country: GB (occurrence: GB)
  Receive Date: 20170226
  Receipt Date: 20170226
  Transmission Date: 20170428
  Serious: Yes (Other)
  Sender: FDA-Public Use
  Company Number: GB-MYLANLABS-2017M1011457

PATIENT

DRUGS (1)
  1. AZATHIOPRINE. [Suspect]
     Active Substance: AZATHIOPRINE
     Indication: ECZEMA

REACTIONS (4)
  - Eczema [Recovered/Resolved]
  - Drug ineffective [Unknown]
  - Scab [Recovered/Resolved]
  - Skin discolouration [Not Recovered/Not Resolved]
